FAERS Safety Report 9199862 (Version 1)
Quarter: 2013Q1

REPORT INFORMATION
  Report Type: Report from Study
  Country: US (occurrence: US)
  Receive Date: 20130329
  Receipt Date: 20130329
  Transmission Date: 20140127
  Serious: Yes (Hospitalization)
  Sender: FDA-Public Use
  Company Number: US-ROCHE-1207765

PATIENT
  Age: 57 Year
  Sex: Male
  Weight: 78.46 kg

DRUGS (1)
  1. CAPECITABINE [Suspect]
     Indication: PANCREATIC CARCINOMA METASTATIC
     Dosage: 26/APR/2012, DOSE PRIOR TO SAE.
     Route: 048
     Dates: start: 20120413

REACTIONS (1)
  - Colitis [Unknown]
